FAERS Safety Report 16464232 (Version 1)
Quarter: 2019Q3

REPORT INFORMATION
  Report Type: Spontaneous
  Country: US (occurrence: US)
  Receive Date: 20190620
  Receipt Date: 20190620
  Transmission Date: 20191004
  Serious: No
  Sender: FDA-Public Use
  Company Number: None

PATIENT
  Age: 5 Year
  Sex: Male
  Weight: 18.9 kg

DRUGS (2)
  1. MIRALAX [Suspect]
     Active Substance: POLYETHYLENE GLYCOL 3350
     Indication: CONSTIPATION
     Dates: start: 20150630, end: 20180101
  2. PEDIALAX [Concomitant]

REACTIONS (3)
  - Drug ineffective [None]
  - Constipation [None]
  - Tooth disorder [None]

NARRATIVE: CASE EVENT DATE: 20190617
